FAERS Safety Report 4993047-8 (Version None)
Quarter: 2006Q1

REPORT INFORMATION
  Report Type: 
  Country: None (occurrence: None)
  Receive Date: 20060313
  Receipt Date: 20060120
  Transmission Date: 20060701
  Serious: No
  Sender: FDA-Public Use
  Company Number: 2006-BP-00052BP

PATIENT
  Age: 75 Year
  Sex: Female

DRUGS (14)
  1. SPIRIVA [Suspect]
     Indication: CHRONIC OBSTRUCTIVE PULMONARY DISEASE
     Dosage: 18 MCG (18 MCG, 1 IN 1 D), IH
     Route: 055
     Dates: start: 20051015
  2. SPIRIVA [Suspect]
     Indication: EMPHYSEMA
  3. LISINOPRIL [Concomitant]
  4. ATENOLOL [Concomitant]
  5. FUROSEMIDE [Concomitant]
  6. PROTONIX [Concomitant]
  7. ISOSORBIDE (ISOSORBIDE) [Concomitant]
  8. DILTIAZEM [Concomitant]
  9. LIPITOR [Concomitant]
  10. ACCOLATE [Concomitant]
  11. PREDNISONE TAB [Concomitant]
  12. NITROSTAT [Concomitant]
  13. ALPRAZOLAM [Concomitant]
  14. ADVAIR (SERETIDE) [Concomitant]

REACTIONS (1)
  - DYSPNOEA [None]
